FAERS Safety Report 15473086 (Version 1)
Quarter: 2018Q4

REPORT INFORMATION
  Report Type: Report from Study
  Country: US (occurrence: PR)
  Receive Date: 20181008
  Receipt Date: 20181008
  Transmission Date: 20190205
  Serious: Yes (Other)
  Sender: FDA-Public Use
  Company Number: US-MYLANLABS-2018M1047997

PATIENT
  Sex: Female
  Weight: 56 kg

DRUGS (1)
  1. GLATIRAMER ACETATE INJECTION [Suspect]
     Active Substance: GLATIRAMER ACETATE
     Indication: RELAPSING-REMITTING MULTIPLE SCLEROSIS
     Dosage: 40 MG, 3XW
     Route: 058

REACTIONS (9)
  - Injection site warmth [Recovered/Resolved]
  - Injection site pain [Recovering/Resolving]
  - Menstruation irregular [Unknown]
  - Injection site erythema [Recovering/Resolving]
  - Injection site bruising [Unknown]
  - Injection site cellulitis [Unknown]
  - Injection site mass [Recovering/Resolving]
  - Injection site swelling [Recovering/Resolving]
  - Injection site pruritus [Recovering/Resolving]
